FAERS Safety Report 9806580 (Version 2)
Quarter: 2014Q1

REPORT INFORMATION
  Report Type: Report from Study
  Country: CO (occurrence: CO)
  Receive Date: 20140109
  Receipt Date: 20140109
  Transmission Date: 20141002
  Serious: Yes (Hospitalization, Other)
  Sender: FDA-Public Use
  Company Number: CO-ABBVIE-13P-036-1181802-00

PATIENT
  Age: 20 Year
  Sex: Male
  Weight: 50 kg

DRUGS (1)
  1. HUMIRA [Suspect]
     Indication: COLITIS ULCERATIVE
     Route: 058
     Dates: start: 20130927, end: 20131206

REACTIONS (11)
  - Chills [Recovering/Resolving]
  - Drug ineffective [Unknown]
  - Diarrhoea [Recovering/Resolving]
  - Weight decreased [Recovering/Resolving]
  - Haemoglobin decreased [Unknown]
  - Blood pressure decreased [Unknown]
  - Gastrointestinal inflammation [Unknown]
  - Large intestinal ulcer [Unknown]
  - Tachycardia [Unknown]
  - Pyrexia [Unknown]
  - Device related infection [Unknown]
